FAERS Safety Report 8103493-1 (Version None)
Quarter: 2012Q1

REPORT INFORMATION
  Report Type: 
  Country: None (occurrence: None)
  Receive Date: 20120201
  Receipt Date: 20120130
  Transmission Date: 20120608
  Serious: Yes (Death)
  Sender: FDA-Public Use
  Company Number: PHEH2012US001296

PATIENT
  Sex: Female

DRUGS (1)
  1. MYFORTIC [Suspect]
     Indication: DERMATOMYOSITIS
     Dosage: 720 MG, BID
     Route: 048
     Dates: start: 20090520

REACTIONS (1)
  - DEATH [None]
